APPROVED DRUG PRODUCT: OMEPRAZOLE MAGNESIUM
Active Ingredient: OMEPRAZOLE MAGNESIUM
Strength: EQ 20MG BASE
Dosage Form/Route: TABLET, DELAYED RELEASE;ORAL
Application: A206582 | Product #001
Applicant: P AND L DEVELOPMENT LLC
Approved: Jun 1, 2020 | RLD: No | RS: No | Type: OTC